FAERS Safety Report 25204267 (Version 1)
Quarter: 2025Q2

REPORT INFORMATION
  Report Type: Spontaneous
  Country: ES (occurrence: ES)
  Receive Date: 20250416
  Receipt Date: 20250416
  Transmission Date: 20250717
  Serious: Yes (Death, Other)
  Sender: AMGEN
  Company Number: ES-AMGEN-ESPSP2025072099

PATIENT

DRUGS (1)
  1. TRASTUZUMAB [Suspect]
     Active Substance: TRASTUZUMAB
     Indication: Breast cancer
     Route: 065

REACTIONS (8)
  - Neoplasm [Fatal]
  - Breast cancer [Fatal]
  - Death [Fatal]
  - Coronary artery disease [Unknown]
  - Heart valve incompetence [Unknown]
  - Heart valve stenosis [Unknown]
  - Atrial fibrillation [Unknown]
  - Arrhythmia [Unknown]
